FAERS Safety Report 8095115-3 (Version None)
Quarter: 2011Q4

REPORT INFORMATION
  Report Type: 
  Country: None (occurrence: None)
  Receive Date: 20111222
  Receipt Date: 20111103
  Transmission Date: 20120403
  Serious: Yes (Hospitalization)
  Sender: FDA-Public Use
  Company Number: UTC-011982

PATIENT
  Age: 58 Year
  Sex: Female
  Weight: 57.7 kg

DRUGS (4)
  1. OXYGEN (OXYGEN) [Concomitant]
  2. ASPIRIN [Concomitant]
  3. TYVASO [Suspect]
     Indication: COR PULMONALE CHRONIC
     Dosage: 72 MCG (18 MCG,4 IN 1 D),INHALATION
     Route: 055
     Dates: start: 20111020
  4. DIURETICS (DIURETICS) [Concomitant]

REACTIONS (2)
  - CARDIAC DISORDER [None]
  - THROMBOSIS [None]
